FAERS Safety Report 6945382-1 (Version None)
Quarter: 2010Q3

REPORT INFORMATION
  Report Type: 
  Country: None (occurrence: None)
  Receive Date: 20100827
  Receipt Date: 20100813
  Transmission Date: 20110219
  Serious: Yes (Other)
  Sender: FDA-Public Use
  Company Number: PHHY2010MX53862

PATIENT
  Age: 77 Year
  Sex: Male

DRUGS (2)
  1. DIOVAN [Suspect]
     Indication: HYPERTENSION
     Dosage: 160 MG, 01 TABLET PER DAY
     Route: 065
  2. DIOVAN [Suspect]
     Dosage: 2 TABLETS PER DAY

REACTIONS (1)
  - CARDIAC ARREST [None]
